FAERS Safety Report 5747386-3 (Version None)
Quarter: 2008Q2

REPORT INFORMATION
  Report Type: 
  Country: None (occurrence: None)
  Receive Date: 20080523
  Receipt Date: 20080515
  Transmission Date: 20081010
  Serious: Yes (Hospitalization)
  Sender: FDA-Public Use
  Company Number: AU-JNJFOC-20080503512

PATIENT
  Age: 24 Year
  Sex: Female

DRUGS (6)
  1. TOPAMAX [Suspect]
     Indication: EPILEPSY
     Route: 048
  2. TEGRETOL [Suspect]
     Indication: EPILEPSY
     Route: 048
  3. CALTRATE [Concomitant]
  4. HEPARIN SODIUM [Concomitant]
  5. IBUPROFEN [Concomitant]
  6. OSTELIN [Concomitant]

REACTIONS (1)
  - OSTEOPOROSIS [None]
